FAERS Safety Report 12316375 (Version 1)
Quarter: 2016Q2

REPORT INFORMATION
  Report Type: Report from Study
  Country: US (occurrence: US)
  Receive Date: 20160429
  Receipt Date: 20160429
  Transmission Date: 20160815
  Serious: Yes (Disabling)
  Sender: FDA-Public Use
  Company Number: US-ABBVIE-16P-163-1616161-00

PATIENT
  Age: 63 Year
  Sex: Male

DRUGS (2)
  1. VIEKIRA PAK [Suspect]
     Active Substance: DASABUVIR\OMBITASVIR\PARITAPREVIR\RITONAVIR
     Indication: HEPATITIS C
     Route: 048
     Dates: start: 20151222
  2. MODERIBA [Suspect]
     Active Substance: RIBAVIRIN
     Indication: HEPATITIS C
     Dosage: 600MG IN THE AM: 600MG IN THE PM
     Route: 048
     Dates: start: 20151222

REACTIONS (2)
  - Blindness [Recovered/Resolved]
  - Retinal vascular occlusion [Recovered/Resolved]

NARRATIVE: CASE EVENT DATE: 20160413
